FAERS Safety Report 23783620 (Version 1)
Quarter: 2024Q2

REPORT INFORMATION
  Report Type: Spontaneous
  Country: US (occurrence: None)
  Receive Date: 20240424
  Receipt Date: 20240424
  Transmission Date: 20240716
  Serious: No
  Sender: FDA-Public Use
  Company Number: None

PATIENT
  Age: 64 Year
  Sex: Male
  Weight: 130.4 kg

DRUGS (1)
  1. CALCITRIOL [Suspect]
     Active Substance: CALCITRIOL

REACTIONS (2)
  - Drug dispensed to wrong patient [None]
  - Product administered by wrong person [None]

NARRATIVE: CASE EVENT DATE: 20240422
